FAERS Safety Report 5988997-X (Version None)
Quarter: 2008Q4

REPORT INFORMATION
  Report Type: 
  Country: None (occurrence: None)
  Receive Date: 20081209
  Receipt Date: 20081209
  Transmission Date: 20090506
  Serious: Yes (Hospitalization)
  Sender: FDA-Public Use
  Company Number: None

PATIENT
  Sex: Male
  Weight: 64.1 kg

DRUGS (11)
  1. TEMOZOLOMIDE [Suspect]
     Indication: GLIOBLASTOMA MULTIFORME
     Dosage: 85MG DAILY X 28 DAYS PO
     Route: 048
     Dates: start: 20081017, end: 20081113
  2. BEVACIZUMAB [Suspect]
     Indication: GLIOBLASTOMA MULTIFORME
     Dosage: 621MG Q 2 WEEKS IV
     Route: 042
     Dates: start: 20081017, end: 20081031
  3. LAMICTAL [Concomitant]
  4. KEPPRA [Concomitant]
  5. VALTREX [Concomitant]
  6. COLACE [Concomitant]
  7. METAMUCIL [Concomitant]
  8. DECADRON [Concomitant]
  9. LISINOPRIL [Concomitant]
  10. MULTI-VITAMIN [Concomitant]
  11. CALCIUM/VITAMIN D [Concomitant]

REACTIONS (3)
  - ASTHENIA [None]
  - DISEASE PROGRESSION [None]
  - NEUROPATHY PERIPHERAL [None]
